FAERS Safety Report 7098385-3 (Version None)
Quarter: 2010Q4

REPORT INFORMATION
  Report Type: 
  Country: None (occurrence: None)
  Receive Date: 20101112
  Receipt Date: 20101103
  Transmission Date: 20110411
  Serious: Yes (Other)
  Sender: FDA-Public Use
  Company Number: US-PFIZER INC-2010095295

PATIENT
  Sex: Female

DRUGS (2)
  1. CHANTIX [Suspect]
     Indication: SMOKING CESSATION THERAPY
     Dosage: UNK
     Dates: start: 20070921, end: 20071128
  2. WELLBUTRIN XL [Concomitant]
     Indication: DEPRESSION
     Dosage: UNK
     Dates: start: 20050101

REACTIONS (6)
  - ANXIETY [None]
  - DEPRESSION [None]
  - MEMORY IMPAIRMENT [None]
  - PERSONALITY CHANGE [None]
  - PSYCHOTIC DISORDER [None]
  - SUICIDAL IDEATION [None]
